FAERS Safety Report 16684534 (Version 2)
Quarter: 2019Q4

REPORT INFORMATION
  Report Type: Report from Study
  Country: US (occurrence: US)
  Receive Date: 20190808
  Receipt Date: 20191202
  Transmission Date: 20200122
  Serious: Yes (Other)
  Sender: FDA-Public Use
  Company Number: US-INCYTE CORPORATION-2015IN006219

PATIENT

DRUGS (37)
  1. LISINOPRIL. [Concomitant]
     Active Substance: LISINOPRIL
     Indication: HYPERTENSION
     Dosage: 40 MG, QD
     Route: 065
     Dates: start: 2006, end: 20161116
  2. NORVASC [Concomitant]
     Active Substance: AMLODIPINE BESYLATE
     Dosage: 5 MG, QD
     Route: 065
     Dates: start: 20170307, end: 20170403
  3. NORVASC [Concomitant]
     Active Substance: AMLODIPINE BESYLATE
     Dosage: 10 MG, QD
     Route: 065
     Dates: start: 20170404
  4. OXYBUTININ ACCORD [Concomitant]
     Indication: STRESS URINARY INCONTINENCE
     Dosage: 10 MG, QD
     Route: 065
     Dates: start: 20130630, end: 20170413
  5. PRAVASTATIN. [Concomitant]
     Active Substance: PRAVASTATIN
     Indication: BLOOD CHOLESTEROL INCREASED
     Dosage: 20 MILLIGRAM, QHS
     Route: 065
     Dates: start: 20170501
  6. JAKAFI [Suspect]
     Active Substance: RUXOLITINIB
     Dosage: 20 MG, BID
     Route: 048
     Dates: start: 20170519
  7. CITALOPRAM [Concomitant]
     Active Substance: CITALOPRAM HYDROBROMIDE
     Indication: ANXIETY
     Dosage: 20 MG, QD
     Route: 065
     Dates: start: 20140215, end: 20160618
  8. ZITHROMAX [Concomitant]
     Active Substance: AZITHROMYCIN DIHYDRATE
     Dosage: 250 MG, QD
     Route: 065
     Dates: start: 20170223, end: 20170228
  9. CELESTONE [Concomitant]
     Active Substance: BETAMETHASONE
     Indication: UPPER RESPIRATORY TRACT INFECTION
     Dosage: 6 MG, ONCE
     Route: 065
     Dates: start: 20160906, end: 20160906
  10. FLUVAX [Concomitant]
     Active Substance: INFLUENZA VIRUS VACCINE
     Dosage: 0.5ML, ONCE
     Route: 065
     Dates: start: 20151022, end: 20151022
  11. FLUVAX [Concomitant]
     Active Substance: INFLUENZA VIRUS VACCINE
     Dosage: 0.5 ML, ONCE
     Route: 065
     Dates: start: 20161007, end: 20161007
  12. BENZONATATE. [Concomitant]
     Active Substance: BENZONATATE
     Indication: COUGH
     Dosage: 1 DOSAGE FORM, PRN
     Route: 048
     Dates: start: 20170223, end: 20170228
  13. CODEINE PHOSPHATE W/GUAIFENESIN [Concomitant]
     Active Substance: CODEINE PHOSPHATE\GUAIFENESIN
     Indication: COUGH
     Dosage: 1 TSP, PRN
     Route: 065
     Dates: start: 20160828, end: 20161122
  14. POTASSIUM CHLORIDE. [Concomitant]
     Active Substance: POTASSIUM CHLORIDE
     Indication: HYPOKALAEMIA
     Dosage: 20 MEQ, BID
     Route: 065
     Dates: start: 20170516, end: 20170816
  15. ASA [Concomitant]
     Active Substance: ASPIRIN
     Indication: THROMBOSIS PROPHYLAXIS
     Dosage: 81 MG, QD
     Route: 065
     Dates: start: 20180103
  16. JAKAFI [Suspect]
     Active Substance: RUXOLITINIB
     Dosage: 15 MG, BID
     Route: 048
     Dates: start: 20160219, end: 20170518
  17. DOXYCYCLINE. [Concomitant]
     Active Substance: DOXYCYCLINE
     Indication: SINUSITIS
     Dosage: 2 DOSAGE FORM, BID
     Route: 048
     Dates: start: 20160331, end: 20160406
  18. CHERATUSSIN AC [Concomitant]
     Active Substance: CODEINE PHOSPHATE\GUAIFENESIN
     Indication: COUGH
     Dosage: 5 ML, PRN
     Route: 065
     Dates: start: 20160523, end: 20160706
  19. BENZONATATE. [Concomitant]
     Active Substance: BENZONATATE
     Indication: SINUSITIS
     Dosage: 200 MG, QD
     Route: 065
     Dates: start: 20171113, end: 20171115
  20. ASPIRIN                            /00002701/ [Concomitant]
     Active Substance: ASPIRIN
     Indication: PROPHYLAXIS
     Dosage: 81 MILLIGRAM, QD
     Route: 065
     Dates: start: 20130123, end: 20171114
  21. HYDREA [Concomitant]
     Active Substance: HYDROXYUREA
     Indication: POLYCYTHAEMIA VERA
     Dosage: 500 MG, QOD
     Route: 065
     Dates: start: 20180411
  22. FLUVAX [Concomitant]
     Active Substance: INFLUENZA VIRUS VACCINE
     Indication: PROPHYLAXIS
     Dosage: 0.5 ML, ONCE
     Route: 065
     Dates: start: 20141110, end: 20141110
  23. TRIAMTERENE AND HYDROCHLOROTHIAZIDE [Concomitant]
     Active Substance: HYDROCHLOROTHIAZIDE\TRIAMTERENE
     Indication: HYPERTENSION
     Dosage: 37.5/25 MG, QD
     Route: 065
     Dates: start: 20170320
  24. TUSSIONEX                          /07870401/ [Concomitant]
     Indication: COUGH
     Dosage: 5 MILLILITER, PRN
     Route: 065
     Dates: start: 20170223, end: 20170228
  25. MUCINEX [Concomitant]
     Active Substance: GUAIFENESIN
     Indication: SINUSITIS
     Dosage: 30 ML, QD
     Route: 065
     Dates: start: 20171111, end: 20171116
  26. FLUVAX [Concomitant]
     Active Substance: INFLUENZA VIRUS VACCINE
     Dosage: 0.5 ML, ONCE
     Route: 065
     Dates: start: 20170925, end: 20170925
  27. TOPAMAX [Concomitant]
     Active Substance: TOPIRAMATE
     Indication: HEADACHE
     Dosage: 25 MG, QHS
     Route: 065
     Dates: start: 20170413, end: 20170515
  28. GABAPENTIN. [Concomitant]
     Active Substance: GABAPENTIN
     Indication: PAIN IN EXTREMITY
     Dosage: 100 MG QHS
     Route: 065
     Dates: start: 20150903, end: 20170516
  29. POTASSIUM CHLORIDE. [Concomitant]
     Active Substance: POTASSIUM CHLORIDE
     Dosage: 20 MEQ, QD
     Route: 065
     Dates: start: 20170817
  30. SIMVASTIN [Concomitant]
     Active Substance: SIMVASTATIN
     Indication: BLOOD CHOLESTEROL INCREASED
     Dosage: 20 MG, QD
     Route: 065
     Dates: start: 20150319, end: 20170430
  31. TYLENOL WITH CODEINE [Concomitant]
     Active Substance: ACETAMINOPHEN\CODEINE PHOSPHATE
     Indication: HEADACHE
     Dosage: ONE TABLET
     Route: 065
     Dates: start: 20160725, end: 20160725
  32. NORVASC [Concomitant]
     Active Substance: AMLODIPINE BESYLATE
     Indication: HYPERTENSION
     Dosage: 2.5 MG, QD
     Route: 065
     Dates: start: 201111, end: 20170306
  33. SUMATRIPTAN. [Concomitant]
     Active Substance: SUMATRIPTAN
     Indication: HEADACHE
     Dosage: 25 MILLIGRAM, PRN
     Route: 065
     Dates: start: 20170413, end: 20170515
  34. JAKAFI [Suspect]
     Active Substance: RUXOLITINIB
     Indication: POLYCYTHAEMIA VERA
     Dosage: 10 MG, BID
     Route: 048
     Dates: start: 20140113, end: 20160205
  35. MECLIZINE [Concomitant]
     Active Substance: MECLIZINE HYDROCHLORIDE
     Indication: VERTIGO
     Dosage: 25 MILLIGRAM, ONCE
     Route: 065
     Dates: start: 20141124, end: 20141124
  36. CLONIDINE. [Concomitant]
     Active Substance: CLONIDINE
     Indication: HYPERTENSION
     Dosage: 0.1 MILLIGRAM, PRN
     Route: 065
     Dates: start: 20170321, end: 20170531
  37. ZITHROMAX [Concomitant]
     Active Substance: AZITHROMYCIN DIHYDRATE
     Indication: UPPER RESPIRATORY TRACT INFECTION
     Dosage: 250 MG, QD
     Route: 065
     Dates: start: 20161117, end: 20161122

REACTIONS (28)
  - Hypokalaemia [Recovered/Resolved]
  - Oesophagitis [Recovered/Resolved]
  - Basal cell carcinoma [Recovered/Resolved]
  - Anaemia [Recovered/Resolved]
  - Oedema peripheral [Recovered/Resolved]
  - Upper respiratory tract infection [Recovered/Resolved]
  - Sleep apnoea syndrome [Not Recovered/Not Resolved]
  - Upper respiratory tract infection [Recovered/Resolved]
  - Aspartate aminotransferase increased [Recovered/Resolved]
  - Bursitis [Recovered/Resolved]
  - Pain in extremity [Recovered/Resolved]
  - Musculoskeletal pain [Recovered/Resolved]
  - Upper respiratory tract infection [Recovered/Resolved]
  - Thrombocytosis [Recovered/Resolved]
  - Aspartate aminotransferase increased [Recovered/Resolved]
  - Chronic kidney disease [Recovered/Resolved]
  - Blood bilirubin increased [Recovered/Resolved]
  - Arthralgia [Recovered/Resolved]
  - Alanine aminotransferase increased [Recovered/Resolved]
  - Alanine aminotransferase increased [Recovered/Resolved]
  - Non-cardiac chest pain [Recovered/Resolved]
  - Aspartate aminotransferase increased [Recovered/Resolved]
  - Sinusitis [Recovered/Resolved]
  - Sinusitis [Recovered/Resolved]
  - Upper respiratory tract infection [Recovered/Resolved]
  - Sinusitis [Recovered/Resolved]
  - Thrombocytosis [Not Recovered/Not Resolved]
  - Alanine aminotransferase increased [Recovered/Resolved]

NARRATIVE: CASE EVENT DATE: 20130813
